FAERS Safety Report 19248378 (Version 1)
Quarter: 2021Q2

REPORT INFORMATION
  Report Type: Spontaneous
  Country: PL (occurrence: PL)
  Receive Date: 20210512
  Receipt Date: 20210512
  Transmission Date: 20210717
  Serious: Yes (Hospitalization, Other)
  Sender: FDA-Public Use
  Company Number: PL-TEVA-2021-PL-1909109

PATIENT
  Age: 76 Year
  Sex: Female

DRUGS (34)
  1. VENLAFAXINE [Suspect]
     Active Substance: VENLAFAXINE HYDROCHLORIDE
     Route: 065
  2. HYDROXYZINE [Suspect]
     Active Substance: HYDROXYZINE HYDROCHLORIDE
     Route: 065
  3. TAPENTADOL [Suspect]
     Active Substance: TAPENTADOL
     Route: 065
  4. CAPTOPRIL. [Concomitant]
     Active Substance: CAPTOPRIL
  5. LUTEINA [Concomitant]
     Dosage: 50 MILLIGRAM DAILY;
  6. DUSPATALIN RETARD [Concomitant]
     Dosage: 2 DOSAGE FORMS DAILY;
  7. UROSEPT [Concomitant]
     Dosage: 2 DOSAGE FORMS DAILY;
  8. LIOTON 1000 [Concomitant]
     Route: 061
  9. FENTANYL. [Suspect]
     Active Substance: FENTANYL
     Indication: PAIN
     Route: 062
  10. OXYCODONE [Suspect]
     Active Substance: OXYCODONE
     Route: 065
  11. CHLORPROTHIXENE [Suspect]
     Active Substance: CHLORPROTHIXENE
     Dosage: 30 MILLIGRAM DAILY;
     Route: 065
  12. AMITRIPTYLINE [Suspect]
     Active Substance: AMITRIPTYLINE
     Route: 065
  13. TORECAN [Concomitant]
     Active Substance: THIETHYLPERAZINE MALATE
     Dosage: 6.5 MILLIGRAM DAILY;
  14. DIURESIN SR [Concomitant]
     Active Substance: INDAPAMIDE
     Dosage: 1 DOSAGE FORMS DAILY;
  15. VITAMIN D3 [Concomitant]
     Active Substance: CHOLECALCIFEROL
     Dosage: 4000 IU (INTERNATIONAL UNIT) DAILY;
  16. RENNIE [Concomitant]
     Dosage: 2 DOSAGE FORMS DAILY;
  17. FLEGAMINA [Concomitant]
     Active Substance: BROMHEXINE HYDROCHLORIDE
     Dosage: 8 MILLIGRAM DAILY;
  18. FENTANYL. [Suspect]
     Active Substance: FENTANYL
     Route: 045
  19. MORPHINE [Suspect]
     Active Substance: MORPHINE
     Route: 065
  20. TIANESAL [Concomitant]
     Active Substance: TIANEPTINE SODIUM
     Dosage: 37.5 MILLIGRAM DAILY;
     Route: 065
  21. MIZODIN [Concomitant]
     Dosage: 250 MILLIGRAM DAILY;
  22. ALCRENO [Suspect]
     Active Substance: QUETIAPINE
     Dosage: 25 MILLIGRAM DAILY;
     Route: 065
  23. ULGIX WZDECIA MAX [Concomitant]
     Active Substance: DIMETHICONE
     Dosage: 4 DOSAGE FORMS DAILY;
  24. NO?SPA FORTE [Concomitant]
     Active Substance: DROTAVERINE HYDROCHLORIDE
     Dosage: 2 DOSAGE FORMS DAILY;
  25. TRAUMON [Concomitant]
     Active Substance: ETOFENAMATE
     Route: 061
  26. PREGABALIN. [Concomitant]
     Active Substance: PREGABALIN
     Dosage: 150 MILLIGRAM DAILY;
     Route: 065
  27. INHIBACE [Concomitant]
     Active Substance: CILAZAPRIL ANHYDROUS
     Dosage: 10 MILLIGRAM DAILY;
  28. MILURIT [Concomitant]
     Active Substance: ALLOPURINOL
     Dosage: 150 MILLIGRAM DAILY;
  29. EFFENTORA [Suspect]
     Active Substance: FENTANYL CITRATE
     Indication: PAIN
     Dosage: 4800 MICROGRAM DAILY;
     Route: 002
  30. BISOCARD [Concomitant]
     Active Substance: BISOPROLOL
     Dosage: 2.5 MILLIGRAM DAILY;
     Route: 065
  31. KALIPOZ PROLONGATUM [Concomitant]
     Active Substance: POTASSIUM CHLORIDE
     Dosage: 1 DOSAGE FORMS DAILY;
  32. MEMOTROPIL [Concomitant]
     Active Substance: PIRACETAM
     Dosage: 2400 MILLIGRAM DAILY;
  33. NITRENDYPINA EGIS [Concomitant]
     Dosage: 5 MILLIGRAM DAILY;
  34. STRUCTUM [Concomitant]
     Dosage: 1000 MILLIGRAM DAILY;

REACTIONS (13)
  - Drug intolerance [Unknown]
  - Constipation [Unknown]
  - Mental disorder [Unknown]
  - Asthenia [Unknown]
  - Drug dependence [Unknown]
  - Hypotension [Unknown]
  - Contraindicated product administered [Unknown]
  - Obstruction [Unknown]
  - Drug use disorder [Unknown]
  - Pain [Unknown]
  - Drug withdrawal syndrome [Unknown]
  - Intentional product use issue [Unknown]
  - Product use in unapproved indication [Unknown]
